FAERS Safety Report 21105763 (Version 2)
Quarter: 2023Q2

REPORT INFORMATION
  Report Type: Spontaneous
  Country: US (occurrence: US)
  Receive Date: 20220720
  Receipt Date: 20230405
  Transmission Date: 20230722
  Serious: No
  Sender: FDA-Public Use
  Company Number: USA--2022-US-000361

PATIENT
  Age: 57 Year
  Sex: Male

DRUGS (2)
  1. BRIMONIDINE TARTRATE [Suspect]
     Active Substance: BRIMONIDINE TARTRATE
     Dosage: 1 GTT OU BID
  2. LATANOPROST [Concomitant]
     Active Substance: LATANOPROST
     Dosage: 1GTT OU QHS

REACTIONS (6)
  - Abdominal discomfort [Unknown]
  - Visual impairment [Unknown]
  - Eye pain [Unknown]
  - Vision blurred [Unknown]
  - Medication error [Unknown]
  - Eye pruritus [Unknown]

NARRATIVE: CASE EVENT DATE: 20220504
